FAERS Safety Report 4699857-9 (Version None)
Quarter: 2005Q2

REPORT INFORMATION
  Report Type: 
  Country: None (occurrence: None)
  Receive Date: 20050623
  Receipt Date: 20050610
  Transmission Date: 20051028
  Serious: Yes (Disabling)
  Sender: FDA-Public Use
  Company Number: 2005080904

PATIENT
  Age: 36 Year
  Sex: Female

DRUGS (1)
  1. MINOXIDIL [Suspect]
     Indication: ALOPECIA
     Dosage: 1 ML, TOPICAL
     Route: 061
     Dates: start: 20050304, end: 20050406

REACTIONS (3)
  - DERMATITIS ALLERGIC [None]
  - DERMATITIS CONTACT [None]
  - DRUG HYPERSENSITIVITY [None]
